FAERS Safety Report 15155855 (Version 1)
Quarter: 2018Q3

REPORT INFORMATION
  Report Type: Spontaneous
  Country: NL (occurrence: NL)
  Receive Date: 20180717
  Receipt Date: 20180717
  Transmission Date: 20181010
  Serious: Yes (Hospitalization)
  Sender: FDA-Public Use
  Company Number: NL-US WORLDMEDS, LLC-STA_00018589

PATIENT
  Age: 70 Year
  Sex: Male

DRUGS (9)
  1. AMANTADINE CAPS 100MG [Concomitant]
  2. ROPINIROL TBL MGA 4MG [Concomitant]
  3. CLOZAPINE TBL 62,5MG [Concomitant]
  4. HYDROCORTISON ACETAAT OINTMENT 10MG/G [Concomitant]
  5. APOMORPHINE HYDROCHLORIDE [Suspect]
     Active Substance: APOMORPHINE HYDROCHLORIDE
     Indication: PARKINSON^S DISEASE
     Dosage: 0.8ML/HR (=4.0MG/HR) 16HRS, BOLUS 0.35ML (=1,75MG) MAX 3X DAILY
     Route: 058
     Dates: start: 20140715
  6. LEVODOPA/BENSERAZIDE CAPS MGA 100/25MG [Concomitant]
  7. LEVODOPA/CARBIDOPA TBL 100/25MG [Concomitant]
  8. ATROPINE EYEDROPS 10MG/ML [Concomitant]
  9. MACROGOL ZOUTEN [Concomitant]

REACTIONS (4)
  - Fall [Unknown]
  - Hallucination [Not Recovered/Not Resolved]
  - Fatigue [Not Recovered/Not Resolved]
  - Hypophagia [Not Recovered/Not Resolved]

NARRATIVE: CASE EVENT DATE: 201512
